FAERS Safety Report 7154197-3 (Version None)
Quarter: 2010Q4

REPORT INFORMATION
  Report Type: 
  Country: None (occurrence: None)
  Receive Date: 20101213
  Receipt Date: 20101203
  Transmission Date: 20110411
  Serious: Yes (Hospitalization)
  Sender: FDA-Public Use
  Company Number: GB-PFIZER INC-2010163674

PATIENT
  Sex: Male

DRUGS (1)
  1. LYRICA [Suspect]
     Indication: EPILEPSY

REACTIONS (3)
  - DYSPHAGIA [None]
  - MALAISE [None]
  - SURGERY [None]
